FAERS Safety Report 22096449 (Version 1)
Quarter: 2023Q1

REPORT INFORMATION
  Report Type: Spontaneous
  Country: CN (occurrence: None)
  Receive Date: 20230315
  Receipt Date: 20230315
  Transmission Date: 20230418
  Serious: Yes (Other)
  Sender: FDA-Public Use
  Company Number: CN-ROCHE-3301067

PATIENT
  Age: 54 Year
  Sex: Female
  Weight: 65 kg

DRUGS (13)
  1. AVASTIN [Suspect]
     Active Substance: BEVACIZUMAB
     Indication: Ovarian epithelial cancer
     Dosage: 1 CYCLE
     Route: 042
     Dates: start: 20230203
  2. AVASTIN [Suspect]
     Active Substance: BEVACIZUMAB
     Dosage: D0
     Route: 042
  3. AVASTIN [Suspect]
     Active Substance: BEVACIZUMAB
     Route: 042
     Dates: start: 20230203
  4. PACLITAXEL [Concomitant]
     Active Substance: PACLITAXEL
     Indication: Ovarian epithelial cancer
     Dosage: 1 CYCLE
     Route: 042
  5. PACLITAXEL [Concomitant]
     Active Substance: PACLITAXEL
     Dosage: D1, D8
     Route: 042
     Dates: start: 20221008
  6. PACLITAXEL [Concomitant]
     Active Substance: PACLITAXEL
     Dosage: 200MG D1,150MG D8
     Route: 042
     Dates: start: 20230203
  7. PACLITAXEL [Concomitant]
     Active Substance: PACLITAXEL
     Dosage: 160MG D1, 150MG D8,
     Route: 042
     Dates: start: 20221111, end: 20221201
  8. CARBOPLATIN [Concomitant]
     Active Substance: CARBOPLATIN
     Indication: Ovarian epithelial cancer
     Dosage: 1 CYCLE
     Route: 042
  9. CARBOPLATIN [Concomitant]
     Active Substance: CARBOPLATIN
     Dosage: 1 CYCLE
     Route: 042
  10. CISPLATIN [Concomitant]
     Active Substance: CISPLATIN
     Indication: Ovarian epithelial cancer
     Dosage: 110 MG IN 3 DAYS
     Dates: start: 20221008
  11. CISPLATIN [Concomitant]
     Active Substance: CISPLATIN
     Dosage: 110 MG IN 3 DAYS
     Dates: start: 20230203
  12. CISPLATIN [Concomitant]
     Active Substance: CISPLATIN
     Dosage: 30MG D1, 30MG D2,40MG D3
     Dates: start: 20221111, end: 20221201
  13. OLAPARIB [Concomitant]
     Active Substance: OLAPARIB
     Indication: Ovarian epithelial cancer
     Dosage: 2 CAPSULES IN THE MORNING AND 1 CAPSULE IN THE EVENING
     Dates: start: 20221221

REACTIONS (12)
  - Febrile neutropenia [Recovering/Resolving]
  - Procalcitonin increased [Recovering/Resolving]
  - Transaminases increased [Recovering/Resolving]
  - Blood bilirubin increased [Recovering/Resolving]
  - Drug-induced liver injury [Recovering/Resolving]
  - Infection [Recovering/Resolving]
  - Anaemia [Unknown]
  - White blood cell count decreased [Unknown]
  - Neutrophil count decreased [Unknown]
  - Deep vein thrombosis [Unknown]
  - Urinary tract infection [Unknown]
  - Neurotoxicity [Unknown]
